FAERS Safety Report 6036258-5 (Version None)
Quarter: 2009Q1

REPORT INFORMATION
  Report Type: 
  Country: None (occurrence: None)
  Receive Date: 20090113
  Receipt Date: 20090107
  Transmission Date: 20090719
  Serious: Yes (Other)
  Sender: FDA-Public Use
  Company Number: PHHY2008GB21469

PATIENT

DRUGS (1)
  1. RITALIN [Suspect]
     Route: 048

REACTIONS (1)
  - DRUG WITHDRAWAL HEADACHE [None]
